FAERS Safety Report 19698082 (Version 1)
Quarter: 2021Q3

REPORT INFORMATION
  Report Type: Spontaneous
  Country: US (occurrence: US)
  Receive Date: 20210813
  Receipt Date: 20210813
  Transmission Date: 20211014
  Serious: No
  Sender: FDA-Public Use
  Company Number: None

PATIENT
  Sex: Female

DRUGS (17)
  1. POTASSIUM CHLORIDE. [Concomitant]
     Active Substance: POTASSIUM CHLORIDE
  2. IBRANCE [Suspect]
     Active Substance: PALBOCICLIB
     Indication: BREAST CANCER
     Dosage: FREQUENCY: 21D, 7OFF
     Route: 048
     Dates: start: 20210327
  3. ATORVASTATIN [Concomitant]
     Active Substance: ATORVASTATIN
  4. CLONIDINE. [Concomitant]
     Active Substance: CLONIDINE
  5. FEMARA [Suspect]
     Active Substance: LETROZOLE
  6. LASIX [Concomitant]
     Active Substance: FUROSEMIDE
  7. LOSARTAN. [Concomitant]
     Active Substance: LOSARTAN
  8. CHLORTHALIDONE. [Concomitant]
     Active Substance: CHLORTHALIDONE
  9. FERROUS SULFATE. [Concomitant]
     Active Substance: FERROUS SULFATE
  10. PANTOPRAZOLE [Concomitant]
     Active Substance: PANTOPRAZOLE
  11. MAGNESIUM [Concomitant]
     Active Substance: MAGNESIUM
  12. ONDANSETRON [Concomitant]
     Active Substance: ONDANSETRON
  13. ALBUTEROL. [Concomitant]
     Active Substance: ALBUTEROL
  14. AMARYL [Concomitant]
     Active Substance: GLIMEPIRIDE
  15. ASPIRIN. [Concomitant]
     Active Substance: ASPIRIN
  16. SPIRONOLACTONE. [Concomitant]
     Active Substance: SPIRONOLACTONE
  17. VITAMIN D2 [Suspect]
     Active Substance: ERGOCALCIFEROL

REACTIONS (1)
  - Disease progression [None]
